FAERS Safety Report 7951763-X (Version None)
Quarter: 2011Q4

REPORT INFORMATION
  Report Type: 
  Country: None (occurrence: None)
  Receive Date: 20111201
  Receipt Date: 20111121
  Transmission Date: 20120403
  Serious: Yes (Hospitalization)
  Sender: FDA-Public Use
  Company Number: US-NOVOPROD-340051

PATIENT
  Sex: Female
  Weight: 109.4 kg

DRUGS (1)
  1. LIRAGLUTIDE FLEXPEN [Suspect]
     Indication: OBESITY
     Dosage: 2.4 MG, QD
     Route: 058
     Dates: start: 20111026, end: 20111118

REACTIONS (1)
  - PANCREATITIS ACUTE [None]
